FAERS Safety Report 6182597-7 (Version None)
Quarter: 2009Q2

REPORT INFORMATION
  Report Type: 
  Country: None (occurrence: None)
  Receive Date: 20090507
  Receipt Date: 20090428
  Transmission Date: 20091009
  Serious: Yes (Other)
  Sender: FDA-Public Use
  Company Number: CH-JNJFOC-20090407115

PATIENT
  Sex: Male

DRUGS (6)
  1. REMICADE [Suspect]
     Route: 042
  2. REMICADE [Suspect]
     Indication: PSORIATIC ARTHROPATHY
     Dosage: FOR 3 INFUSIONS
     Route: 042
  3. ORENCIA [Concomitant]
  4. METHOTREXATE [Concomitant]
     Route: 058
  5. FOLSAURE [Concomitant]
  6. DAFALGAN [Concomitant]

REACTIONS (1)
  - LIVER DISORDER [None]
